FAERS Safety Report 9846830 (Version 1)
Quarter: 2013Q4

REPORT INFORMATION
  Report Type: Spontaneous
  Country: US (occurrence: None)
  Receive Date: 20131219
  Receipt Date: 20131219
  Transmission Date: 20140711
  Serious: Yes (Hospitalization)
  Sender: FDA-Public Use
  Company Number: 163-20785-13073729

PATIENT
  Age: 73 Year
  Sex: Male
  Weight: 77.1 kg

DRUGS (4)
  1. THALIDOMID (THALIDOMIDE) (CAPSULES ) [Suspect]
     Indication: PLASMA CELL MYELOMA
     Route: 048
     Dates: start: 2010, end: 201012
  2. TRICOR (FENOFIBRATE) (UNKNOWN) [Concomitant]
  3. ASPIRIN (ACETYLSALICYLIC ACID) (UNKNOWN) (ACETYLSALICYLIC ACID) [Concomitant]
  4. SPIRONOLACTONE (SPIRONOLACTONE) (UNKNOWN) [Concomitant]

REACTIONS (2)
  - Myocardial infarction [None]
  - Drug ineffective [None]
